FAERS Safety Report 7337210-X (Version None)
Quarter: 2011Q1

REPORT INFORMATION
  Report Type: 
  Country: None (occurrence: None)
  Receive Date: 20110308
  Receipt Date: 20110302
  Transmission Date: 20110831
  Serious: Yes (Other)
  Sender: FDA-Public Use
  Company Number: US-PFIZER INC-2010175741

PATIENT
  Sex: Female

DRUGS (3)
  1. TOPAMAX [Concomitant]
     Indication: MIGRAINE
     Dosage: UNK
     Dates: start: 20080101
  2. CHANTIX [Suspect]
     Indication: SMOKING CESSATION THERAPY
     Dosage: 0.5 MG, UNK
     Dates: start: 20081201, end: 20090301
  3. HYDROCODONE [Concomitant]
     Indication: PAIN
     Dosage: UNK
     Dates: start: 20060101, end: 20100101

REACTIONS (7)
  - AGGRESSION [None]
  - MENTAL DISORDER [None]
  - ANXIETY [None]
  - HOSTILITY [None]
  - DEPRESSION [None]
  - NIGHTMARE [None]
  - MOOD SWINGS [None]
